FAERS Safety Report 20594405 (Version 1)
Quarter: 2022Q1

REPORT INFORMATION
  Report Type: Report from Study
  Country: US (occurrence: US)
  Receive Date: 20220315
  Receipt Date: 20220315
  Transmission Date: 20220423
  Serious: Yes (Other)
  Sender: FDA-Public Use
  Company Number: US-GILEAD-2022-0573021

PATIENT
  Age: 56 Year
  Sex: Female

DRUGS (32)
  1. AZTREONAM LYSINE [Suspect]
     Active Substance: AZTREONAM LYSINE
     Indication: Cystic fibrosis lung
     Dosage: 75 MG, TID, 28/28
     Route: 055
     Dates: start: 20190221
  2. ZYRTEC [Concomitant]
     Active Substance: CETIRIZINE HYDROCHLORIDE
  3. DIFLUCAN [Concomitant]
     Active Substance: FLUCONAZOLE
  4. PREDNISONE [Concomitant]
     Active Substance: PREDNISONE
  5. FLONASE ALLERGY RELIEF [Concomitant]
     Active Substance: FLUTICASONE PROPIONATE
  6. TRESIBA [Concomitant]
     Active Substance: INSULIN DEGLUDEC
  7. NEXIUM I.V. [Concomitant]
     Active Substance: ESOMEPRAZOLE SODIUM
  8. KLOR-CON [Concomitant]
     Active Substance: POTASSIUM CHLORIDE
  9. BYSTOLIC [Concomitant]
     Active Substance: NEBIVOLOL HYDROCHLORIDE
  10. STIOLTO RESPIMAT [Concomitant]
     Active Substance: OLODATEROL HYDROCHLORIDE\TIOTROPIUM BROMIDE MONOHYDRATE
  11. NYSTATIN [Concomitant]
     Active Substance: NYSTATIN
  12. CYCLOBENZAPRINE HYDROCHLORIDE [Concomitant]
     Active Substance: CYCLOBENZAPRINE HYDROCHLORIDE
  13. BROVANA [Concomitant]
     Active Substance: ARFORMOTEROL TARTRATE
  14. COLACE [Concomitant]
     Active Substance: DOCUSATE SODIUM
  15. EFFEXOR [Concomitant]
     Active Substance: VENLAFAXINE HYDROCHLORIDE
  16. CREON [Concomitant]
     Active Substance: PANCRELIPASE AMYLASE\PANCRELIPASE LIPASE\PANCRELIPASE PROTEASE
  17. BUDESONIDE [Concomitant]
     Active Substance: BUDESONIDE
  18. FIASP [Concomitant]
     Active Substance: INSULIN ASPART
  19. ADVAIR HFA [Concomitant]
     Active Substance: FLUTICASONE PROPIONATE\SALMETEROL XINAFOATE
  20. ASPIRIN [Concomitant]
     Active Substance: ASPIRIN
  21. ALBUTEROL SULFATE [Concomitant]
     Active Substance: ALBUTEROL SULFATE
  22. MUPIROCIN [Concomitant]
     Active Substance: MUPIROCIN
  23. SODIUM CHLORIDE [Concomitant]
     Active Substance: SODIUM CHLORIDE
  24. MAXIDEX [Concomitant]
     Active Substance: DEXAMETHASONE
  25. AZITHROMYCIN [Concomitant]
     Active Substance: AZITHROMYCIN
  26. ALLEGRA D-12 HOUR [Concomitant]
     Active Substance: FEXOFENADINE HYDROCHLORIDE\PSEUDOEPHEDRINE HYDROCHLORIDE
  27. TARCEVA [Concomitant]
     Active Substance: ERLOTINIB HYDROCHLORIDE
  28. PULMOZYME [Concomitant]
     Active Substance: DORNASE ALFA
  29. MAGNESIUM CITRATE [Concomitant]
     Active Substance: MAGNESIUM CITRATE
  30. PROAIR HFA [Concomitant]
     Active Substance: ALBUTEROL SULFATE
  31. MUCINEX [Concomitant]
     Active Substance: GUAIFENESIN
  32. GENTAMICIN [Concomitant]
     Active Substance: GENTAMICIN

REACTIONS (1)
  - Pseudomonas infection [Unknown]
